FAERS Safety Report 10284983 (Version 1)
Quarter: 2014Q3

REPORT INFORMATION
  Report Type: Spontaneous
  Country: GB (occurrence: GB)
  Receive Date: 20140708
  Receipt Date: 20140708
  Transmission Date: 20150326
  Serious: Yes (Other)
  Sender: FDA-Public Use
  Company Number: GB-GLAXOSMITHKLINE-B1010957A

PATIENT
  Age: 35 Year
  Sex: Female
  Weight: 74 kg

DRUGS (21)
  1. AMITRIPTYLINE HYDROCHLORIDE. [Concomitant]
     Active Substance: AMITRIPTYLINE HYDROCHLORIDE
     Dates: start: 20140204
  2. CLENIL MODULITE [Concomitant]
     Active Substance: BECLOMETHASONE DIPROPIONATE
     Dates: start: 20140226
  3. MEBEVERINE HYDROCHLORIDE [Concomitant]
     Active Substance: MEBEVERINE HYDROCHLORIDE
     Dates: start: 20140430
  4. OMEPRAZOLE. [Concomitant]
     Active Substance: OMEPRAZOLE
     Dates: start: 20140522
  5. CLOPIDOGREL [Concomitant]
     Active Substance: CLOPIDOGREL BISULFATE
     Dates: start: 20140305, end: 20140404
  6. VENTOLIN [Concomitant]
     Active Substance: ALBUTEROL SULFATE
     Dates: start: 20140417, end: 20140515
  7. ASPIRIN. [Concomitant]
     Active Substance: ASPIRIN
     Dates: start: 20140304, end: 20140401
  8. SALMETEROL [Concomitant]
     Active Substance: SALMETEROL
     Dates: start: 20140319, end: 20140517
  9. TRAMADOL [Concomitant]
     Active Substance: TRAMADOL
     Dates: start: 20140319
  10. ASPIRIN. [Concomitant]
     Active Substance: ASPIRIN
     Dates: start: 20140430, end: 20140528
  11. OMEPRAZOLE. [Concomitant]
     Active Substance: OMEPRAZOLE
     Dates: start: 20140401, end: 20140527
  12. SERETIDE [Suspect]
     Active Substance: FLUTICASONE FUROATE\SALMETEROL XINAFOATE
  13. LORATADINE. [Concomitant]
     Active Substance: LORATADINE
     Dates: start: 20140410, end: 20140510
  14. NEFOPAM [Concomitant]
     Active Substance: NEFOPAM
     Dates: start: 20140523, end: 20140524
  15. SALMETEROL [Concomitant]
     Active Substance: SALMETEROL
     Dates: start: 20140610
  16. NORETHINDRONE AND ETHINYL ESTRADIOL [Concomitant]
     Active Substance: ETHINYL ESTRADIOL\NORETHINDRONE
     Dates: start: 20131231
  17. PARACETAMOL [Concomitant]
     Active Substance: ACETAMINOPHEN
     Dates: start: 20140320
  18. VENTOLIN [Concomitant]
     Active Substance: ALBUTEROL SULFATE
     Dates: start: 20140610
  19. COLOFAC [Concomitant]
     Active Substance: MEBEVERINE HYDROCHLORIDE
     Dates: start: 20140228, end: 20140330
  20. DIAZEPAM. [Concomitant]
     Active Substance: DIAZEPAM
     Dates: start: 20140320
  21. EPIPEN [Concomitant]
     Active Substance: EPINEPHRINE
     Dates: start: 20140430, end: 20140528

REACTIONS (2)
  - Chest discomfort [Recovered/Resolved]
  - Wheezing [Recovered/Resolved]

NARRATIVE: CASE EVENT DATE: 20140618
